FAERS Safety Report 9017522 (Version 1)
Quarter: 2013Q1

REPORT INFORMATION
  Report Type: Spontaneous
  Country: US (occurrence: US)
  Receive Date: 20130117
  Receipt Date: 20130117
  Transmission Date: 20140127
  Serious: Yes (Other)
  Sender: FDA-Public Use
  Company Number: CHPA2013US000752

PATIENT
  Age: 72 Year
  Sex: Female

DRUGS (2)
  1. NUPERCAINAL HEMORRHOIDAL/ANES OINTMENT [Suspect]
     Indication: THERMAL BURN
     Dosage: AS DIRECTED
     Route: 061
     Dates: start: 1955
  2. CORTIZONE [Concomitant]

REACTIONS (12)
  - Embolism [Recovered/Resolved]
  - Thermal burn [Recovered/Resolved]
  - Pain [Recovered/Resolved]
  - Inflammation [Recovered/Resolved]
  - Soft tissue injury [Recovered/Resolved]
  - Joint stiffness [Not Recovered/Not Resolved]
  - Peripheral coldness [Not Recovered/Not Resolved]
  - Pain in extremity [Not Recovered/Not Resolved]
  - Local swelling [Unknown]
  - Therapeutic response unexpected [Unknown]
  - Off label use [Unknown]
  - Expired drug administered [Unknown]
